FAERS Safety Report 8250853-4 (Version None)
Quarter: 2012Q2

REPORT INFORMATION
  Report Type: 
  Country: None (occurrence: None)
  Receive Date: 20120402
  Receipt Date: 20120328
  Transmission Date: 20120825
  Serious: Yes (Other)
  Sender: FDA-Public Use
  Company Number: PHEH2012US001417

PATIENT
  Sex: Male
  Weight: 99.773 kg

DRUGS (6)
  1. CELEXA [Concomitant]
     Dosage: 10 MG, QD
     Route: 048
  2. TRAZODONE HCL [Concomitant]
     Indication: SLEEP DISORDER
     Dosage: 50 MG, QD
  3. CLARITIN [Concomitant]
     Dosage: 10 MG, UNK
  4. NAPROXEN (ALEVE) [Concomitant]
     Dosage: 220 MG, UNK
  5. GILENYA [Suspect]
     Indication: RELAPSING-REMITTING MULTIPLE SCLEROSIS
     Dosage: 1 DF, DAILY
     Route: 048
     Dates: start: 20111219, end: 20120114
  6. MULTI-VITAMINS [Concomitant]
     Dosage: UNK UKN, UNK

REACTIONS (9)
  - PALPITATIONS [None]
  - FATIGUE [None]
  - BACK PAIN [None]
  - DIZZINESS [None]
  - DYSPNOEA [None]
  - MYALGIA [None]
  - INFLUENZA LIKE ILLNESS [None]
  - ARTHRALGIA [None]
  - HEART RATE ABNORMAL [None]
